FAERS Safety Report 23719875 (Version 1)
Quarter: 2024Q2

REPORT INFORMATION
  Report Type: Spontaneous
  Country: MX (occurrence: MX)
  Receive Date: 20240408
  Receipt Date: 20240408
  Transmission Date: 20240716
  Serious: Yes (Death, Hospitalization)
  Sender: FDA-Public Use
  Company Number: MX-ELI_LILLY_AND_COMPANY-MX202404002905

PATIENT
  Age: 50 Year
  Sex: Female

DRUGS (1)
  1. OLUMIANT [Suspect]
     Active Substance: BARICITINIB
     Indication: Product used for unknown indication
     Dosage: 4 MG, UNKNOWN
     Route: 065
     Dates: start: 2019

REACTIONS (4)
  - Impetigo [Fatal]
  - Sepsis [Fatal]
  - Arthritis bacterial [Fatal]
  - Herpes zoster [Fatal]
